FAERS Safety Report 10685820 (Version 1)
Quarter: 2014Q4

REPORT INFORMATION
  Report Type: Spontaneous
  Country: GB (occurrence: GB)
  Receive Date: 20141231
  Receipt Date: 20141231
  Transmission Date: 20150529
  Serious: Yes (Life-Threatening, Hospitalization, Disabling, Other)
  Sender: FDA-Public Use
  Company Number: GB-PFIZER INC-2014360036

PATIENT
  Age: 68 Year
  Sex: Female
  Weight: 50 kg

DRUGS (12)
  1. AZATHIOPRINE. [Concomitant]
     Active Substance: AZATHIOPRINE
  2. EZETIMIBE. [Concomitant]
     Active Substance: EZETIMIBE
  3. FLUOXETINE [Concomitant]
     Active Substance: FLUOXETINE\FLUOXETINE HYDROCHLORIDE
  4. PREDNISOLONE. [Concomitant]
     Active Substance: PREDNISOLONE
  5. ALFACALCIDOL [Concomitant]
     Active Substance: ALFACALCIDOL
  6. WARFARIN [Concomitant]
     Active Substance: WARFARIN
  7. ATORVASTATIN [Concomitant]
     Active Substance: ATORVASTATIN
  8. SIROLIMUS. [Suspect]
     Active Substance: SIROLIMUS
     Indication: RENAL TRANSPLANT
     Dosage: 3 MG, UNK
     Dates: start: 200303, end: 20141206
  9. BISOPROLOL [Concomitant]
     Active Substance: BISOPROLOL
  10. AMLODIPINE [Concomitant]
     Active Substance: AMLODIPINE BESYLATE
  11. ZOPICLONE [Concomitant]
     Active Substance: ZOPICLONE
  12. OMEPRAZOLE. [Concomitant]
     Active Substance: OMEPRAZOLE

REACTIONS (4)
  - Cough [Unknown]
  - Pneumonitis [Recovering/Resolving]
  - Pyrexia [Unknown]
  - Renal impairment [Unknown]

NARRATIVE: CASE EVENT DATE: 20141110
